FAERS Safety Report 16671872 (Version 1)
Quarter: 2019Q3

REPORT INFORMATION
  Report Type: Spontaneous
  Country: US (occurrence: US)
  Receive Date: 20190620
  Receipt Date: 20190620
  Transmission Date: 20191004
  Serious: No
  Sender: FDA-Public Use
  Company Number: None

PATIENT
  Age: 77 Year
  Sex: Female
  Weight: 77.11 kg

DRUGS (1)
  1. OTEZLA [Suspect]
     Active Substance: APREMILAST
     Indication: PSORIASIS
     Route: 048
     Dates: start: 201904

REACTIONS (6)
  - Abdominal pain upper [None]
  - Feeling hot [None]
  - Psoriasis [None]
  - Condition aggravated [None]
  - Erythema [None]
  - Hyperhidrosis [None]
